FAERS Safety Report 9190069 (Version 1)
Quarter: 2013Q1

REPORT INFORMATION
  Report Type: Spontaneous
  Country: US (occurrence: US)
  Receive Date: 20130326
  Receipt Date: 20130326
  Transmission Date: 20140127
  Serious: No
  Sender: FDA-Public Use
  Company Number: US-PFIZER INC-2013095845

PATIENT
  Age: 63 Year
  Sex: Female
  Weight: 90.7 kg

DRUGS (5)
  1. CELEBREX [Suspect]
     Indication: AUTOIMMUNE DISORDER
     Dosage: 200 MG, 1X/DAY
     Route: 048
  2. CELEBREX [Suspect]
     Dosage: 200 MG, 2X/DAY
     Dates: end: 201303
  3. LYRICA [Suspect]
     Indication: AUTOIMMUNE DISORDER
     Dosage: 50 MG, 2X/DAY
     Route: 048
  4. METHOTREXATE [Concomitant]
     Dosage: UNK, WEEKLY
  5. SYNTHROID [Concomitant]
     Indication: THYROID DISORDER
     Dosage: 0.1 MG, UNK

REACTIONS (2)
  - Body height decreased [Unknown]
  - Pain [Unknown]
